FAERS Safety Report 8472586-1 (Version None)
Quarter: 2012Q2

REPORT INFORMATION
  Report Type: 
  Country: None (occurrence: None)
  Receive Date: 20120622
  Receipt Date: 20120622
  Transmission Date: 20120825
  Serious: Yes (Other)
  Sender: FDA-Public Use
  Company Number: None

PATIENT
  Age: 64 Year

DRUGS (1)
  1. VEMURAFENIB [Suspect]
     Indication: METASTATIC MALIGNANT MELANOMA
     Dosage: 960 MG BID PO
     Route: 048
     Dates: start: 20111207

REACTIONS (4)
  - SKIN EXFOLIATION [None]
  - SKIN ODOUR ABNORMAL [None]
  - RASH [None]
  - DRY SKIN [None]
